FAERS Safety Report 15836784 (Version 1)
Quarter: 2019Q1

REPORT INFORMATION
  Report Type: Spontaneous
  Country: US (occurrence: US)
  Receive Date: 20190117
  Receipt Date: 20190117
  Transmission Date: 20190417
  Serious: Yes (Death, Life-Threatening, Hospitalization, Other)
  Sender: FDA-Public Use
  Company Number: US-SA-2018SA325057

PATIENT
  Age: 58 Year
  Sex: Female

DRUGS (10)
  1. MEROPENEM. [Concomitant]
     Active Substance: MEROPENEM
     Indication: ENTEROBACTER INFECTION
  2. HYDROCORTISONE. [Suspect]
     Active Substance: HYDROCORTISONE
     Indication: ENTEROCOCCAL INFECTION
  3. HYDROCORTISONE. [Suspect]
     Active Substance: HYDROCORTISONE
     Indication: ENTEROBACTER INFECTION
  4. AMIKACIN. [Concomitant]
     Active Substance: AMIKACIN
     Indication: ENTEROBACTER INFECTION
  5. HYDROCORTISONE. [Suspect]
     Active Substance: HYDROCORTISONE
     Indication: BACTERAEMIA
     Dosage: STRESS DOSE HYDROCORTISONE FROM PBD 35 TO 74
  6. HEPARIN [Suspect]
     Active Substance: HEPARIN SODIUM
     Indication: THROMBOSIS PROPHYLAXIS
     Dosage: UNK, Q12H, LOW-INTENSITY HEPARIN DRIP
     Route: 041
  7. HYDROCORTISONE. [Suspect]
     Active Substance: HYDROCORTISONE
     Indication: PSEUDOMONAS INFECTION
  8. HYDROCORTISONE. [Suspect]
     Active Substance: HYDROCORTISONE
     Indication: SEPTIC SHOCK
  9. HYDROCORTISONE. [Suspect]
     Active Substance: HYDROCORTISONE
     Indication: PNEUMONIA
  10. ISAVUCONAZOLE [Concomitant]
     Active Substance: ISAVUCONAZOLE
     Indication: ENTEROBACTER INFECTION

REACTIONS (14)
  - Hepatic cirrhosis [Not Recovered/Not Resolved]
  - Herpes simplex hepatitis [Fatal]
  - Peritoneal haemorrhage [Not Recovered/Not Resolved]
  - Acute hepatic failure [Not Recovered/Not Resolved]
  - Hepatic necrosis [Not Recovered/Not Resolved]
  - Abdominal distension [Unknown]
  - Retroperitoneal haemorrhage [Not Recovered/Not Resolved]
  - Metabolic acidosis [Unknown]
  - Ischaemic hepatitis [Not Recovered/Not Resolved]
  - Pupillary reflex impaired [Unknown]
  - Herpes simplex [Fatal]
  - Hyperlactacidaemia [Unknown]
  - Coagulopathy [Not Recovered/Not Resolved]
  - Haemorrhage intracranial [Unknown]
